FAERS Safety Report 8820799 (Version 2)
Quarter: 2013Q1

REPORT INFORMATION
  Report Type: Spontaneous
  Country: PL (occurrence: PL)
  Receive Date: 20121002
  Receipt Date: 20130128
  Transmission Date: 20140127
  Serious: Yes (Other)
  Sender: FDA-Public Use
  Company Number: PL-JNJFOC-20120910291

PATIENT
  Age: 43 Year
  Sex: Female

DRUGS (6)
  1. REMICADE [Suspect]
     Indication: PSORIASIS
     Route: 042
     Dates: start: 200704, end: 200802
  2. REMICADE [Suspect]
     Indication: PSORIASIS
     Route: 042
     Dates: start: 200805, end: 200902
  3. REMICADE [Suspect]
     Indication: PSORIATIC ARTHROPATHY
     Route: 042
     Dates: start: 200805, end: 200902
  4. REMICADE [Suspect]
     Indication: PSORIATIC ARTHROPATHY
     Route: 042
     Dates: start: 200704, end: 200802
  5. METHOTREXATE [Concomitant]
     Indication: PSORIASIS
     Route: 065
  6. METHOTREXATE [Concomitant]
     Indication: PSORIASIS
     Dosage: 15-20MG
     Route: 065

REACTIONS (3)
  - Pulmonary embolism [Recovered/Resolved]
  - Deep vein thrombosis [Recovered/Resolved]
  - Drug ineffective [Recovered/Resolved]
